FAERS Safety Report 13853784 (Version 1)
Quarter: 2017Q3

REPORT INFORMATION
  Report Type: Spontaneous
  Country: FR (occurrence: FR)
  Receive Date: 20170810
  Receipt Date: 20170810
  Transmission Date: 20171127
  Serious: Yes (Death)
  Sender: FDA-Public Use
  Company Number: FR-HQ SPECIALTY-FR-2017INT000252

PATIENT
  Age: 60 Year
  Sex: Female

DRUGS (6)
  1. CISPLATIN. [Suspect]
     Active Substance: CISPLATIN
     Indication: METASTASES TO PERITONEUM
     Route: 033
  2. CISPLATIN. [Suspect]
     Active Substance: CISPLATIN
     Indication: APPENDIX CANCER
  3. MITOMYCIN C [Suspect]
     Active Substance: MITOMYCIN
     Indication: OVARIAN CYST
  4. MITOMYCIN C [Suspect]
     Active Substance: MITOMYCIN
     Indication: METASTASES TO PERITONEUM
     Route: 033
  5. MITOMYCIN C [Suspect]
     Active Substance: MITOMYCIN
     Indication: APPENDIX CANCER
  6. CISPLATIN. [Suspect]
     Active Substance: CISPLATIN
     Indication: OVARIAN CYST

REACTIONS (1)
  - Diaphragmatic paralysis [Fatal]
